FAERS Safety Report 5290037-5 (Version None)
Quarter: 2007Q1

REPORT INFORMATION
  Report Type: 
  Country: None (occurrence: None)
  Receive Date: 20070330
  Receipt Date: 20070315
  Transmission Date: 20070707
  Serious: Yes (Life-Threatening)
  Sender: FDA-Public Use
  Company Number: 2007JP001122

PATIENT
  Age: 36 Year
  Sex: Female

DRUGS (7)
  1. EPOCELIN(CEFTIZOXIME) INJECTION [Suspect]
     Indication: ANTIBIOTIC PROPHYLAXIS
     Dosage: 0.33 G, TID, IV NOS
     Route: 042
     Dates: start: 20070226, end: 20070227
  2. OXYTOCIN (OXYTOCIN) INJECTION [Concomitant]
  3. HEPARIN [Concomitant]
  4. METHERGINE [Concomitant]
  5. TORADOL [Concomitant]
  6. RANIDIL (RANITIDINE HYDROCHLORIDE) INJECTION [Concomitant]
  7. PLASIL (METOCLOPRAMIDE HYDROCHLORIDE) INJECTION [Concomitant]

REACTIONS (4)
  - DYSPNOEA [None]
  - INFUSION RELATED REACTION [None]
  - PRURITUS [None]
  - RASH [None]
